FAERS Safety Report 23494891 (Version 4)
Quarter: 2024Q2

REPORT INFORMATION
  Report Type: Report from Study
  Country: US (occurrence: US)
  Receive Date: 20240207
  Receipt Date: 20240508
  Transmission Date: 20240715
  Serious: Yes (Hospitalization)
  Sender: FDA-Public Use
  Company Number: US-AMGEN-USASL2024021634

PATIENT
  Age: 84 Year
  Sex: Female

DRUGS (2)
  1. LUMAKRAS [Suspect]
     Active Substance: SOTORASIB
     Indication: Non-small cell lung cancer
     Dosage: 960 MILLIGRAM, (3 PILLS OF 320 MG), QD
     Route: 065
     Dates: start: 202309, end: 202311
  2. LUMAKRAS [Suspect]
     Active Substance: SOTORASIB
     Dosage: 960 MILLIGRAM, QD (THREE 320MG TABLETS DAILY)
     Route: 065

REACTIONS (8)
  - Illness [Unknown]
  - Pneumonia [Unknown]
  - Eye disorder [Unknown]
  - Neck pain [Unknown]
  - Musculoskeletal disorder [Unknown]
  - Memory impairment [Not Recovered/Not Resolved]
  - Alopecia [Unknown]
  - Asthenia [Unknown]
